FAERS Safety Report 5780105-3 (Version None)
Quarter: 2008Q2

REPORT INFORMATION
  Report Type: 
  Country: None (occurrence: None)
  Receive Date: 20080620
  Receipt Date: 20080609
  Transmission Date: 20081010
  Serious: Yes (Hospitalization)
  Sender: FDA-Public Use
  Company Number: JP-SANOFI-SYNTHELABO-A01200806785

PATIENT
  Age: 58 Year
  Sex: Female

DRUGS (4)
  1. PROPOFOL [Concomitant]
     Indication: ANAESTHESIA
     Dosage: 3-5 MG/KG/HR
     Route: 065
  2. FENTANYL-100 [Concomitant]
     Indication: ANAESTHESIA
     Dosage: 100-250 MCG
     Route: 065
  3. MILRILA [Suspect]
     Indication: CARDIOVASCULAR DISORDER
     Dosage: UNK
     Route: 042
  4. DORMICUM [Suspect]
     Indication: ANAESTHESIA
     Dosage: 5-10 MG
     Route: 042

REACTIONS (1)
  - RESPIRATORY FAILURE [None]
